FAERS Safety Report 17962868 (Version 1)
Quarter: 2020Q2

REPORT INFORMATION
  Report Type: Spontaneous
  Country: US (occurrence: US)
  Receive Date: 20200630
  Receipt Date: 20200630
  Transmission Date: 20200714
  Serious: Yes (Hospitalization)
  Sender: FDA-Public Use
  Company Number: US-BAYER-2020-124506

PATIENT
  Age: 68 Year
  Sex: Male

DRUGS (12)
  1. EZETIMIBE. [Concomitant]
     Active Substance: EZETIMIBE
  2. METOPROLOL. [Concomitant]
     Active Substance: METOPROLOL
  3. HEPARIN [Interacting]
     Active Substance: HEPARIN SODIUM
  4. GLIPIZID [Concomitant]
  5. METFORMIN [Concomitant]
     Active Substance: METFORMIN HYDROCHLORIDE
  6. CLOPIDOGREL [Interacting]
     Active Substance: CLOPIDOGREL BISULFATE
  7. EMPAGLIFLOZIN [Concomitant]
     Active Substance: EMPAGLIFLOZIN
  8. ROSUVASTATIN. [Concomitant]
     Active Substance: ROSUVASTATIN
  9. DULAGLUTIDE. [Concomitant]
     Active Substance: DULAGLUTIDE
  10. TESTOSTERONE. [Concomitant]
     Active Substance: TESTOSTERONE
  11. ACETYLSALICYLIC ACID [Suspect]
     Active Substance: ASPIRIN
  12. LISINOPRIL. [Concomitant]
     Active Substance: LISINOPRIL

REACTIONS (5)
  - Haemorrhage [None]
  - Product administration error [None]
  - Haematuria [None]
  - Anaemia [None]
  - Labelled drug-drug interaction medication error [None]
